FAERS Safety Report 9145296 (Version 1)
Quarter: 2013Q1

REPORT INFORMATION
  Report Type: Spontaneous
  Country: US (occurrence: None)
  Receive Date: 20130220
  Receipt Date: 20130220
  Transmission Date: 20140127
  Serious: Yes (Death)
  Sender: FDA-Public Use
  Company Number: 2013-00521

PATIENT
  Age: 51 Year
  Sex: Female

DRUGS (4)
  1. IMIPRAMINE [Suspect]
  2. METHADONE [Suspect]
  3. METHAMPHETAMINE [Suspect]
  4. ALPRAZOLAM (UNKNOWN) [Suspect]

REACTIONS (1)
  - Completed suicide [None]
